FAERS Safety Report 23955410 (Version 1)
Quarter: 2024Q2

REPORT INFORMATION
  Report Type: Spontaneous
  Country: US (occurrence: US)
  Receive Date: 20240610
  Receipt Date: 20240610
  Transmission Date: 20240716
  Serious: Yes (Hospitalization, Other)
  Sender: FDA-Public Use
  Company Number: US-PCCINC-2024-PPL-000427

PATIENT

DRUGS (5)
  1. MORPHINE SULFATE [Suspect]
     Active Substance: MORPHINE SULFATE
     Indication: Muscle spasms
     Dosage: 0.8005 MG OF MORPHINE 5 MG/ML DAILY
     Route: 037
  2. MORPHINE SULFATE [Suspect]
     Active Substance: MORPHINE SULFATE
     Dosage: BOLUSES OF 0.081 MG/DAY, UP TO 4/DAY WITH A 2-H LOCK-OUT (ADMINISTERED VIA INTRATHECAL PUMP)
     Route: 037
  3. SERTRALINE [Suspect]
     Active Substance: SERTRALINE HYDROCHLORIDE
     Indication: Depression
     Dosage: 50 MILLIGRAM DAILY
     Route: 048
  4. DULOXETINE [Suspect]
     Active Substance: DULOXETINE
     Indication: Neuralgia
     Dosage: 60 MILLIGRAM DAILY
     Route: 048
  5. BLACK COHOSH [Suspect]
     Active Substance: BLACK COHOSH
     Indication: Hot flush
     Dosage: 40 MILLIGRAM
     Route: 048

REACTIONS (3)
  - Rhabdomyolysis [Recovered/Resolved]
  - Serotonin syndrome [Recovered/Resolved]
  - Drug interaction [Unknown]
